FAERS Safety Report 7009109-X (Version None)
Quarter: 2010Q3

REPORT INFORMATION
  Report Type: 
  Country: None (occurrence: None)
  Receive Date: 20100923
  Receipt Date: 20100913
  Transmission Date: 20110219
  Serious: Yes (Hospitalization)
  Sender: FDA-Public Use
  Company Number: CA-JNJFOC-20100904791

PATIENT
  Sex: Female
  Weight: 58.29 kg

DRUGS (11)
  1. REMICADE [Suspect]
     Indication: DERMATOMYOSITIS
     Dosage: 100MG/10CC
     Route: 042
  2. PREDNISONE [Concomitant]
  3. PRILOSEC [Concomitant]
  4. FENTANYL CITRATE [Concomitant]
     Dosage: PATCH
  5. VITAMIN D [Concomitant]
  6. CALCIUM [Concomitant]
  7. COUMADIN [Concomitant]
  8. VITAMIN B-12 [Concomitant]
  9. FOLIC ACID [Concomitant]
  10. GRAVOL TAB [Concomitant]
  11. ATIVAN [Concomitant]

REACTIONS (5)
  - ASTHENIA [None]
  - BACK PAIN [None]
  - INSOMNIA [None]
  - PAIN [None]
  - SURGERY [None]
